FAERS Safety Report 7284975-1 (Version None)
Quarter: 2011Q1

REPORT INFORMATION
  Report Type: 
  Country: None (occurrence: None)
  Receive Date: 20110204
  Receipt Date: 20110204
  Transmission Date: 20110831
  Serious: No
  Sender: FDA-Public Use
  Company Number: None

PATIENT
  Age: 56 Year
  Sex: Male

DRUGS (1)
  1. HALOPERIDOL [Suspect]
     Indication: AGITATION
     Dates: start: 20110110, end: 20110124

REACTIONS (5)
  - HYPERAESTHESIA [None]
  - INCOHERENT [None]
  - DYSTONIA [None]
  - ACTIVITIES OF DAILY LIVING IMPAIRED [None]
  - PYREXIA [None]
